FAERS Safety Report 5124579-X (Version None)
Quarter: 2006Q3

REPORT INFORMATION
  Report Type: 
  Country: None (occurrence: None)
  Receive Date: 20060822
  Receipt Date: 20060503
  Transmission Date: 20061208
  Serious: No
  Sender: FDA-Public Use
  Company Number: PHEH2006US05859

PATIENT
  Age: 92 Year
  Sex: Female

DRUGS (1)
  1. ENABLEX [Suspect]
     Indication: HYPERTONIC BLADDER
     Dosage: 10 MG

REACTIONS (4)
  - CONDITION AGGRAVATED [None]
  - HYPERTONIC BLADDER [None]
  - URGE INCONTINENCE [None]
  - URINARY INCONTINENCE [None]
